FAERS Safety Report 8008028-X (Version None)
Quarter: 2011Q4

REPORT INFORMATION
  Report Type: 
  Country: None (occurrence: None)
  Receive Date: 20111227
  Receipt Date: 20111221
  Transmission Date: 20120403
  Serious: Yes (Other)
  Sender: FDA-Public Use
  Company Number: IT-BAYER-2011-122960

PATIENT
  Age: 40 Year
  Sex: Female

DRUGS (11)
  1. DACARBAZINE [Suspect]
     Indication: HODGKIN'S DISEASE
  2. ENALAPRIL MALEATE [Concomitant]
     Dosage: DAILY DOSE 5 MG
     Dates: start: 20010601
  3. TRIPTORELIN [Concomitant]
     Indication: HORMONE THERAPY
  4. ROSUVASTATIN [Concomitant]
     Indication: BLOOD CHOLESTEROL ABNORMAL
     Dosage: DAILY DOSE 10 MG
  5. ADRIAMYCIN PFS [Suspect]
     Indication: HODGKIN'S DISEASE
     Dosage: UNK
  6. VINBLASTINE SULFATE [Concomitant]
  7. BLEOMYCIN SULFATE [Concomitant]
     Indication: HODGKIN'S DISEASE
  8. BISOPROLOL FUMARATE [Concomitant]
     Dosage: 2.5 MG, UNK
  9. ENALAPRIL MALEATE [Concomitant]
     Dosage: 7.5 MG, UNK
  10. ATORVASTATIN [Concomitant]
     Indication: BLOOD CHOLESTEROL ABNORMAL
     Dosage: 20 MG, UNK
  11. TAMOXIFEN CITRATE [Concomitant]
     Indication: HORMONE THERAPY

REACTIONS (2)
  - LEFT VENTRICULAR DYSFUNCTION [None]
  - CARDIOTOXICITY [None]
